FAERS Safety Report 8169905-2 (Version None)
Quarter: 2012Q1

REPORT INFORMATION
  Report Type: 
  Country: None (occurrence: None)
  Receive Date: 20120228
  Receipt Date: 20120223
  Transmission Date: 20120608
  Serious: Yes (Other)
  Sender: FDA-Public Use
  Company Number: NL-PFIZER INC-2012049130

PATIENT
  Age: 61 Year
  Sex: Female
  Weight: 78 kg

DRUGS (2)
  1. LYRICA [Suspect]
     Indication: NEURALGIA
     Dosage: 600 MG, 1X/DAY
     Dates: start: 20101115, end: 20110821
  2. MORPHINE [Concomitant]
     Dosage: UNK

REACTIONS (1)
  - DEMENTIA [None]
